FAERS Safety Report 9466911 (Version 1)
Quarter: 2013Q3

REPORT INFORMATION
  Report Type: Spontaneous
  Country: DE (occurrence: DE)
  Receive Date: 20130820
  Receipt Date: 20130820
  Transmission Date: 20140515
  Serious: Yes (Hospitalization)
  Sender: FDA-Public Use
  Company Number: DE-BAUSCH-BL-2013-004579

PATIENT
  Age: 4 Year
  Sex: Male

DRUGS (1)
  1. ZYKLOLAT EDO [Suspect]
     Indication: MYDRIASIS
     Route: 047
     Dates: start: 20130808, end: 20130808

REACTIONS (9)
  - Unresponsive to stimuli [Recovered/Resolved]
  - Disorientation [Recovered/Resolved]
  - Hallucination [Recovered/Resolved]
  - Ataxia [Recovered/Resolved]
  - Fall [Recovered/Resolved]
  - Dry mouth [Recovered/Resolved]
  - Urinary retention [Recovered/Resolved]
  - Visual impairment [Recovered/Resolved]
  - Medication error [Unknown]
